FAERS Safety Report 9613827 (Version 1)
Quarter: 2013Q4

REPORT INFORMATION
  Report Type: Spontaneous
  Country: GR (occurrence: GR)
  Receive Date: 20131010
  Receipt Date: 20131010
  Transmission Date: 20140711
  Serious: Yes (Other)
  Sender: FDA-Public Use
  Company Number: GR-ROCHE-1286290

PATIENT
  Sex: Female

DRUGS (3)
  1. AVASTIN [Suspect]
     Indication: MACULAR DEGENERATION
     Route: 065
  2. LUCENTIS [Suspect]
     Indication: MACULAR DEGENERATION
     Route: 065
  3. LUCENTIS [Suspect]
     Indication: OFF LABEL USE

REACTIONS (1)
  - Herpes zoster [Unknown]
